FAERS Safety Report 5466055-0 (Version None)
Quarter: 2007Q3

REPORT INFORMATION
  Report Type: 
  Country: None (occurrence: None)
  Receive Date: 20070919
  Receipt Date: 20070913
  Transmission Date: 20080115
  Serious: Yes (Hospitalization)
  Sender: FDA-Public Use
  Company Number: 229-C5013-07081217

PATIENT
  Age: 76 Year
  Sex: Female

DRUGS (9)
  1. CC-5013 (LENALIDOMIDE) (CAPSULES) [Suspect]
     Indication: MULTIPLE MYELOMA
     Dosage: 25 MG, DAILY, ORAL; 15 MG, ORAL
     Route: 048
     Dates: start: 20070509, end: 20070821
  2. CC-5013 (LENALIDOMIDE) (CAPSULES) [Suspect]
     Indication: MULTIPLE MYELOMA
     Dosage: 25 MG, DAILY, ORAL; 15 MG, ORAL
     Route: 048
     Dates: start: 20070913
  3. DEXAMETHASONE TAB [Suspect]
     Indication: MULTIPLE MYELOMA
     Dosage: 20 MG, EVERY 2/52
     Dates: start: 20070509
  4. LANSOPRAZOLE [Concomitant]
  5. FRUMIL (FRUMIL) [Concomitant]
  6. MAXALAN (METOCLOPRAMIDE HYDROCHLORIDE) [Concomitant]
  7. MYCOSTATIN [Concomitant]
  8. CORDOSYL [Concomitant]
  9. TRANSFUSION (BLOOD TRANSFUSION, AUXILIARY PRODUCTS) [Concomitant]

REACTIONS (10)
  - BLOOD POTASSIUM DECREASED [None]
  - CONFUSIONAL STATE [None]
  - DEHYDRATION [None]
  - DYSPHASIA [None]
  - HAEMOGLOBIN DECREASED [None]
  - HYPONATRAEMIA [None]
  - NEUTROPENIA [None]
  - PLATELET COUNT DECREASED [None]
  - SEPSIS [None]
  - WHITE BLOOD CELL COUNT DECREASED [None]
